FAERS Safety Report 22169485 (Version 2)
Quarter: 2024Q3

REPORT INFORMATION
  Report Type: Report from Study
  Country: CA (occurrence: CA)
  Receive Date: 20230404
  Receipt Date: 20240920
  Transmission Date: 20241016
  Serious: Yes (Other)
  Sender: ABBVIE
  Company Number: CA-ABBVIE-4713823

PATIENT
  Age: 80 Year
  Sex: Male

DRUGS (15)
  1. SKYRIZI [Suspect]
     Active Substance: RISANKIZUMAB-RZAA
     Indication: Psoriasis
     Route: 058
     Dates: start: 20210227, end: 202209
  2. SKYRIZI [Suspect]
     Active Substance: RISANKIZUMAB-RZAA
     Route: 058
     Dates: start: 20210127, end: 20210227
  3. LAMISIL [Concomitant]
     Active Substance: TERBINAFINE HYDROCHLORIDE
     Indication: Tinea pedis
     Route: 061
     Dates: start: 20210223, end: 20210827
  4. SYNJARDY [Concomitant]
     Active Substance: EMPAGLIFLOZIN\METFORMIN HYDROCHLORIDE
     Indication: Diabetes mellitus
     Route: 048
     Dates: start: 20210107, end: 20210520
  5. SYNJARDY [Concomitant]
     Active Substance: EMPAGLIFLOZIN\METFORMIN HYDROCHLORIDE
     Indication: Diabetes mellitus
     Route: 048
     Dates: start: 20200520, end: 20200602
  6. BREO ELLIPTA [Concomitant]
     Active Substance: FLUTICASONE FUROATE\VILANTEROL TRIFENATATE
     Indication: Asthma
     Dosage: START: 2018?1 DOSAGE FORM?FREQUENCY TEXT: AS NEEDED
     Route: 055
  7. SPIRIVA [Concomitant]
     Active Substance: TIOTROPIUM BROMIDE MONOHYDRATE
     Indication: Asthma
     Dosage: START: 2018?FREQUENCY TEXT: AS NEEDED
     Route: 055
     Dates: start: 2018, end: 202101
  8. AMLODIPINE [Concomitant]
     Active Substance: AMLODIPINE BESYLATE
     Indication: Hypertension
     Dosage: START DATE: 1995
     Route: 048
     Dates: start: 1995
  9. TELMISARTAN [Concomitant]
     Active Substance: TELMISARTAN
     Indication: Hypertension
     Dosage: START: 1995
     Route: 048
     Dates: start: 1995
  10. JANUMET XR [Concomitant]
     Active Substance: METFORMIN HYDROCHLORIDE\SITAGLIPTIN PHOSPHATE
     Indication: Diabetes mellitus
     Route: 048
     Dates: start: 20210608
  11. HUMALOG [Concomitant]
     Active Substance: INSULIN LISPRO
     Indication: Diabetes mellitus
     Route: 058
     Dates: start: 20210122, end: 20210708
  12. JARDIANCE [Concomitant]
     Active Substance: EMPAGLIFLOZIN
     Indication: Diabetes mellitus
     Route: 048
     Dates: start: 20210608
  13. ZOPICLONE [Concomitant]
     Active Substance: ZOPICLONE
     Indication: Sleep disorder therapy
     Dosage: START: 2015
     Route: 048
     Dates: start: 2015
  14. ROSUVASTATIN [Concomitant]
     Active Substance: ROSUVASTATIN\ROSUVASTATIN CALCIUM
     Indication: Blood pressure measurement
     Dosage: START: 1995
     Route: 048
     Dates: start: 1995
  15. TENOFOVIR [Concomitant]
     Active Substance: TENOFOVIR
     Indication: Hepatitis B
     Dosage: START: 2012
     Route: 048
     Dates: start: 2012

REACTIONS (1)
  - Lung cancer metastatic [Not Recovered/Not Resolved]

NARRATIVE: CASE EVENT DATE: 20230201
